FAERS Safety Report 9135194 (Version 1)
Quarter: 2013Q1

REPORT INFORMATION
  Report Type: Spontaneous
  Country: US (occurrence: US)
  Receive Date: 20130304
  Receipt Date: 20130304
  Transmission Date: 20140127
  Serious: No
  Sender: FDA-Public Use
  Company Number: US-BAYER-2013-026319

PATIENT
  Age: 83 Year
  Sex: Male
  Weight: 75 kg

DRUGS (6)
  1. ALEVE CAPLET/TABLET,MIDOL EXTENDED RELIEF CAPLET [Suspect]
     Dosage: 1-2 TAB,QD
     Route: 048
     Dates: end: 20130221
  2. BAYER ASPIRIN REGIMEN ADULT LOW STRENGTH [Concomitant]
     Route: 048
  3. BETA BLOCKING AGENTS [Concomitant]
  4. NEXIUM [Concomitant]
  5. SIMVASTATIN [Concomitant]
  6. ADVIL [Concomitant]

REACTIONS (1)
  - Incorrect drug administration duration [None]
